FAERS Safety Report 10255285 (Version 1)
Quarter: 2014Q2

REPORT INFORMATION
  Report Type: Spontaneous
  Country: US (occurrence: US)
  Receive Date: 20140624
  Receipt Date: 20140624
  Transmission Date: 20141212
  Serious: No
  Sender: FDA-Public Use
  Company Number: US-BAYER-2014-084422

PATIENT
  Age: 35 Year
  Sex: Female
  Weight: 63 kg

DRUGS (3)
  1. ALEVE TABLET [Suspect]
     Dosage: 2 DF, BID
     Route: 048
  2. LEVOTHYROXINE [Concomitant]
     Dosage: UNK
  3. BENADRYL [Concomitant]
     Dosage: UNK UNK, QD

REACTIONS (2)
  - Extra dose administered [None]
  - Intentional product misuse [Unknown]
